FAERS Safety Report 8501309-2 (Version None)
Quarter: 2012Q3

REPORT INFORMATION
  Report Type: 
  Country: None (occurrence: None)
  Receive Date: 20120710
  Receipt Date: 20120705
  Transmission Date: 20120928
  Serious: No
  Sender: FDA-Public Use
  Company Number: US-PFIZER INC-2012161896

PATIENT
  Age: 57 Year
  Sex: Male

DRUGS (7)
  1. TESTOSTERONE CYPIONATE [Suspect]
     Dosage: UNK
  2. DEPO-TESTOSTERONE [Suspect]
     Indication: BLOOD TESTOSTERONE DECREASED
  3. DEPO-TESTOSTERONE [Suspect]
     Indication: ANXIETY
  4. ANDROGEL [Suspect]
     Dosage: UNK
  5. TESTOSTERONE CYPIONATE [Suspect]
     Dosage: UNK
  6. DEPO-TESTOSTERONE [Suspect]
     Indication: HYPOGONADISM
     Dosage: UNK
  7. DEPO-TESTOSTERONE [Suspect]
     Indication: DEPRESSION

REACTIONS (2)
  - SKIN BURNING SENSATION [None]
  - WEIGHT DECREASED [None]
